FAERS Safety Report 5537903-0 (Version None)
Quarter: 2007Q4

REPORT INFORMATION
  Report Type: 
  Country: None (occurrence: None)
  Receive Date: 20071207
  Receipt Date: 20071126
  Transmission Date: 20080405
  Serious: Yes (Hospitalization)
  Sender: FDA-Public Use
  Company Number: FR-BAYER-FR-2007-039838

PATIENT
  Age: 37 Year
  Sex: Female
  Weight: 57 kg

DRUGS (2)
  1. MIRENA [Suspect]
     Indication: UNEVALUABLE EVENT
     Route: 015
     Dates: start: 20060502
  2. MIRENA [Suspect]
     Route: 015
     Dates: start: 20060501

REACTIONS (1)
  - MYOCARDIAL INFARCTION [None]
